FAERS Safety Report 18611003 (Version 1)
Quarter: 2020Q4

REPORT INFORMATION
  Report Type: Spontaneous
  Country: BG (occurrence: BG)
  Receive Date: 20201214
  Receipt Date: 20201214
  Transmission Date: 20210114
  Serious: Yes (Hospitalization, Disabling, Other)
  Sender: FDA-Public Use
  Company Number: BG-MYLANLABS-2020M1100689

PATIENT
  Age: 74 Year
  Sex: Female

DRUGS (4)
  1. OLMESARTAN [Suspect]
     Active Substance: OLMESARTAN
     Indication: HYPERTENSION
     Dosage: 10 MILLIGRAM DAILY; ONCE DAILY
     Route: 048
     Dates: start: 2015, end: 2017
  2. AMLODIPINE BESILATE/VALSARTAN [Suspect]
     Active Substance: AMLODIPINE BESYLATE\VALSARTAN
     Indication: HYPERTENSION
     Dosage: 2 DOSAGE FORMS DAILY; 1 DF = AMLODIPINE 5MG + VALSARTAN 160MG
     Route: 065
     Dates: start: 201810, end: 2019
  3. VALSARTAN. [Suspect]
     Active Substance: VALSARTAN
     Indication: HYPERTENSION
     Dosage: 320 MILLIGRAM DAILY; ONCE DAILY
     Route: 048
     Dates: start: 201707, end: 201809
  4. AMLODIPINE BESILATE/VALSARTAN [Suspect]
     Active Substance: AMLODIPINE BESYLATE\VALSARTAN
     Dosage: 5/160 MILLIGRAM
     Route: 048
     Dates: start: 201810, end: 2019

REACTIONS (6)
  - Squamous cell carcinoma [Not Recovered/Not Resolved]
  - Acral lentiginous melanoma [Not Recovered/Not Resolved]
  - Squamous cell carcinoma of skin [Not Recovered/Not Resolved]
  - Pruritus [Recovering/Resolving]
  - Malignant melanoma [Recovering/Resolving]
  - Tenderness [Recovering/Resolving]

NARRATIVE: CASE EVENT DATE: 2019
